FAERS Safety Report 12323453 (Version 3)
Quarter: 2016Q3

REPORT INFORMATION
  Report Type: Report from Study
  Country: CH (occurrence: CH)
  Receive Date: 20160502
  Receipt Date: 20160909
  Transmission Date: 20161109
  Serious: Yes (Hospitalization, Other)
  Sender: FDA-Public Use
  Company Number: CH-JNJFOC-20160423443

PATIENT
  Age: 38 Year
  Sex: Female
  Weight: 95 kg

DRUGS (2)
  1. STELARA [Suspect]
     Active Substance: USTEKINUMAB
     Indication: PSORIASIS
     Route: 058
     Dates: start: 20160201, end: 20160201
  2. METHOTREXATE. [Concomitant]
     Active Substance: METHOTREXATE
     Route: 065
     Dates: end: 20160102

REACTIONS (6)
  - Pulmonary embolism [Unknown]
  - Cholecystitis [Recovered/Resolved]
  - Venous thrombosis [Unknown]
  - Psoriasis [Unknown]
  - Pancreatitis [Not Recovered/Not Resolved]
  - Pancreatic steatosis [Not Recovered/Not Resolved]

NARRATIVE: CASE EVENT DATE: 20160330
